FAERS Safety Report 12554400 (Version 1)
Quarter: 2016Q3

REPORT INFORMATION
  Report Type: Spontaneous
  Country: US (occurrence: US)
  Receive Date: 20160713
  Receipt Date: 20160713
  Transmission Date: 20161109
  Serious: Yes (Hospitalization)
  Sender: FDA-Public Use
  Company Number: US-GLAXOSMITHKLINE-US2016099782

PATIENT
  Age: 78 Year
  Sex: Female

DRUGS (14)
  1. RESTORIL [Concomitant]
     Active Substance: TEMAZEPAM
  2. ZOVIRAX [Concomitant]
     Active Substance: ACYCLOVIR
  3. CELEBREX [Concomitant]
     Active Substance: CELECOXIB
  4. GABAPENTIN. [Concomitant]
     Active Substance: GABAPENTIN
  5. PERCOCET [Concomitant]
     Active Substance: ACETAMINOPHEN\OXYCODONE HYDROCHLORIDE
  6. CARDIZEM [Concomitant]
     Active Substance: DILTIAZEM HYDROCHLORIDE
  7. SINGULAIR [Concomitant]
     Active Substance: MONTELUKAST SODIUM
  8. PREDNISONE. [Concomitant]
     Active Substance: PREDNISONE
  9. EFFEXOR [Concomitant]
     Active Substance: VENLAFAXINE HYDROCHLORIDE
  10. ESTRACE [Concomitant]
     Active Substance: ESTRADIOL
  11. XANAX [Concomitant]
     Active Substance: ALPRAZOLAM
  12. BREO ELLIPTA [Suspect]
     Active Substance: FLUTICASONE FUROATE\VILANTEROL TRIFENATATE
     Indication: ASTHMA
     Dosage: 1 PUFF(S), 1D
     Route: 055
     Dates: start: 201604
  13. FUROSEMIDE. [Concomitant]
     Active Substance: FUROSEMIDE
  14. TIZANIDINE. [Concomitant]
     Active Substance: TIZANIDINE

REACTIONS (4)
  - Dyspnoea [Unknown]
  - Tremor [Unknown]
  - Fluid retention [Unknown]
  - Infection [Unknown]

NARRATIVE: CASE EVENT DATE: 20160531
